FAERS Safety Report 4961232-7 (Version None)
Quarter: 2006Q1

REPORT INFORMATION
  Report Type: 
  Country: None (occurrence: None)
  Receive Date: 20060329
  Receipt Date: 20060320
  Transmission Date: 20060701
  Serious: Yes (Hospitalization)
  Sender: FDA-Public Use
  Company Number: 060310-0000218

PATIENT
  Age: 63 Year
  Sex: Male

DRUGS (6)
  1. INDOMETHACIN [Suspect]
     Indication: DRUG USE FOR UNKNOWN INDICATION
     Dosage: 50 MG;QID; INJ
  2. FUROSEMIDE [Suspect]
     Indication: CARDIAC FAILURE CONGESTIVE
     Dosage: 250 MG; TID
  3. ALLOPURINOL [Concomitant]
  4. BUMETANIDE [Concomitant]
  5. DIGOXIN [Concomitant]
  6. ISOSORBIDE DINITRATE [Concomitant]

REACTIONS (9)
  - ATRIAL FIBRILLATION [None]
  - CARDIAC FAILURE CONGESTIVE [None]
  - DRUG INTERACTION [None]
  - DYSPNOEA [None]
  - GENERALISED OEDEMA [None]
  - GOUT [None]
  - OEDEMA PERIPHERAL [None]
  - PULMONARY OEDEMA [None]
  - TRICUSPID VALVE INCOMPETENCE [None]
